FAERS Safety Report 5253271-6 (Version None)
Quarter: 2007Q1

REPORT INFORMATION
  Report Type: 
  Country: None (occurrence: None)
  Receive Date: 20070301
  Receipt Date: 20070220
  Transmission Date: 20070707
  Serious: Yes (Hospitalization, Other)
  Sender: FDA-Public Use
  Company Number: US-ELI_LILLY_AND_COMPANY-US200702001314

PATIENT
  Age: 92 Year
  Sex: Female
  Weight: 66.666 kg

DRUGS (11)
  1. FORTEO [Suspect]
     Indication: OSTEOPOROSIS
     Dosage: 20 UG, UNK
     Dates: start: 20051001, end: 20070201
  2. PLAVIX [Concomitant]
     Indication: OSTEOPOROSIS
     Dosage: 75 MG, DAILY (1/D)
  3. ZETIA [Concomitant]
     Dosage: 10 MG, DAILY (1/D)
  4. ALTACE [Concomitant]
     Dosage: 50 MG, DAILY (1/D)
  5. ATENOLOL [Concomitant]
     Dosage: 50 MG, UNK
  6. ISOSORBIDE [Concomitant]
     Dosage: 60 MG, DAILY (1/D)
  7. GLYBURIDE [Concomitant]
     Dosage: 1.25 MG, UNK
  8. ASPIRIN [Concomitant]
  9. CENTRUM SILVER [Concomitant]
     Dosage: 400 IU, 2/D
  10. FERROUS SULFATE [Concomitant]
  11. CITRACAL [Concomitant]

REACTIONS (6)
  - FALL [None]
  - FEMUR FRACTURE [None]
  - GAIT DISTURBANCE [None]
  - HIP FRACTURE [None]
  - MOBILITY DECREASED [None]
  - PAIN [None]
